FAERS Safety Report 9812753 (Version 1)
Quarter: 2014Q1

REPORT INFORMATION
  Report Type: Spontaneous
  Country: US (occurrence: US)
  Receive Date: 20140113
  Receipt Date: 20140113
  Transmission Date: 20141002
  Serious: No
  Sender: FDA-Public Use
  Company Number: US-ROXANE LABORATORIES, INC.-2014-RO-00026RO

PATIENT
  Age: 51 Year
  Sex: Male

DRUGS (3)
  1. RAMIPRIL [Suspect]
     Indication: HYPERTENSION
     Dosage: 2.5 MG
     Route: 048
     Dates: start: 20131028, end: 20131102
  2. LIPITOR [Concomitant]
  3. OMEGA -3 [Concomitant]

REACTIONS (2)
  - Skin reaction [Recovered/Resolved]
  - Pruritus [Recovered/Resolved]
